FAERS Safety Report 11730921 (Version 1)
Quarter: 2015Q4

REPORT INFORMATION
  Report Type: Spontaneous
  Country: US (occurrence: US)
  Receive Date: 20151110
  Receipt Date: 20151110
  Transmission Date: 20160304
  Serious: No
  Sender: FDA-Public Use
  Company Number: US-ELI_LILLY_AND_COMPANY-US201201008917

PATIENT
  Age: 90 Year
  Sex: Female

DRUGS (3)
  1. FORTEO [Suspect]
     Active Substance: TERIPARATIDE
     Dosage: 20 UG, QD
     Dates: end: 20120221
  2. INSULIN [Concomitant]
     Active Substance: INSULIN NOS
     Dosage: UNK, QD
  3. FORTEO [Suspect]
     Active Substance: TERIPARATIDE
     Indication: OSTEOPOROSIS
     Dosage: 20 UG, QD
     Dates: start: 201201

REACTIONS (15)
  - Confusional state [Unknown]
  - Arthralgia [Unknown]
  - Drug dose omission [Recovered/Resolved]
  - Mobility decreased [Unknown]
  - Wrong technique in product usage process [Unknown]
  - Urinary incontinence [Unknown]
  - Sleep disorder due to a general medical condition [Unknown]
  - Feeling abnormal [Unknown]
  - Dysphonia [Unknown]
  - Constipation [Not Recovered/Not Resolved]
  - Insomnia [Not Recovered/Not Resolved]
  - Drug dose omission [Unknown]
  - Intentional product misuse [Not Recovered/Not Resolved]
  - Anger [Unknown]
  - Asthenia [Unknown]

NARRATIVE: CASE EVENT DATE: 20120124
